FAERS Safety Report 5616554-3 (Version None)
Quarter: 2008Q1

REPORT INFORMATION
  Report Type: 
  Country: None (occurrence: None)
  Receive Date: 20080207
  Receipt Date: 20070612
  Transmission Date: 20080703
  Serious: No
  Sender: FDA-Public Use
  Company Number: A0655308A

PATIENT
  Age: 50 Year
  Sex: Female

DRUGS (5)
  1. PAXIL CR [Suspect]
     Indication: DEPRESSION
     Dosage: 37.5MG UNKNOWN
     Route: 048
     Dates: start: 20040701
  2. TOPROL-XL [Concomitant]
  3. EFFEXOR [Concomitant]
  4. PROMETHAZINE [Concomitant]
  5. LORAZEPAM [Concomitant]

REACTIONS (1)
  - DRUG ADMINISTRATION ERROR [None]
